FAERS Safety Report 19426560 (Version 2)
Quarter: 2021Q2

REPORT INFORMATION
  Report Type: Spontaneous
  Country: CN (occurrence: CN)
  Receive Date: 20210616
  Receipt Date: 20210623
  Transmission Date: 20210717
  Serious: Yes (Other)
  Sender: FDA-Public Use
  Company Number: CN-PFIZER INC-2021665984

PATIENT
  Age: 34 Year
  Sex: Female
  Weight: 43 kg

DRUGS (8)
  1. ETOPOSIDE. [Suspect]
     Active Substance: ETOPOSIDE
     Indication: GESTATIONAL TROPHOBLASTIC TUMOUR
     Dosage: 0.14 G, 1X/DAY
     Route: 041
     Dates: start: 20210410, end: 20210411
  2. ACTINOMYCIN D [Suspect]
     Active Substance: DACTINOMYCIN
     Indication: GESTATIONAL TROPHOBLASTIC TUMOUR
     Dosage: 500 UG, 1X/DAY
     Route: 041
     Dates: start: 20210410, end: 20210411
  3. CYCLOPHOSPHAMIDE ANHYDROUS. [Suspect]
     Active Substance: CYCLOPHOSPHAMIDE ANHYDROUS
     Indication: GESTATIONAL TROPHOBLASTIC TUMOUR
     Dosage: UNK
     Dates: start: 20210410
  4. SODIUM CHLORIDE. [Concomitant]
     Active Substance: SODIUM CHLORIDE
     Indication: VEHICLE SOLUTION USE
     Dosage: 4 ML, 2X/DAY
     Route: 030
     Dates: start: 20210410, end: 20210411
  5. SODIUM CHLORIDE. [Concomitant]
     Active Substance: SODIUM CHLORIDE
     Indication: VEHICLE SOLUTION USE
     Dosage: 500 MG, 1X/DAY
     Route: 041
     Dates: start: 20210410, end: 20210411
  6. METHOTREXATE. [Suspect]
     Active Substance: METHOTREXATE
     Indication: GESTATIONAL TROPHOBLASTIC TUMOUR
     Dosage: 280 MG, 1X/DAY
     Route: 041
     Dates: start: 20210410, end: 20210410
  7. CALCIUM FOLINATE [Suspect]
     Active Substance: LEUCOVORIN CALCIUM
     Indication: GESTATIONAL TROPHOBLASTIC TUMOUR
     Dosage: 15 MG, 2X/DAY
     Route: 030
     Dates: start: 20210411, end: 20210412
  8. VINCRISTINE [Suspect]
     Active Substance: VINCRISTINE
     Indication: GESTATIONAL TROPHOBLASTIC TUMOUR
     Dosage: UNK
     Dates: start: 20210410

REACTIONS (9)
  - Nausea [Recovering/Resolving]
  - Product use issue [Unknown]
  - Vomiting [Recovering/Resolving]
  - Anal pruritus [Recovering/Resolving]
  - Off label use [Unknown]
  - Myelosuppression [Recovering/Resolving]
  - Mouth ulceration [Recovering/Resolving]
  - Vision blurred [Recovering/Resolving]
  - Discomfort [Recovering/Resolving]

NARRATIVE: CASE EVENT DATE: 20210410
